FAERS Safety Report 10595908 (Version 2)
Quarter: 2014Q4

REPORT INFORMATION
  Report Type: Spontaneous
  Country: CA (occurrence: CA)
  Receive Date: 20141120
  Receipt Date: 20141202
  Transmission Date: 20150529
  Serious: Yes (Other)
  Sender: FDA-Public Use
  Company Number: CA-BAYER-2014-168032

PATIENT
  Age: 38 Year
  Sex: Female

DRUGS (3)
  1. NAPROXEN. [Concomitant]
     Active Substance: NAPROXEN
  2. CYTOTEC [Concomitant]
     Active Substance: MISOPROSTOL
     Dosage: 400 MG, UNK
     Route: 015
  3. MIRENA [Suspect]
     Active Substance: LEVONORGESTREL
     Dosage: 20 MCG/24HR, CONT
     Route: 015
     Dates: start: 20141106

REACTIONS (5)
  - Complication of device insertion [None]
  - Procedural pain [None]
  - Abdominal pain [None]
  - Seizure [None]
  - Syncope [Recovered/Resolved]

NARRATIVE: CASE EVENT DATE: 20141106
